FAERS Safety Report 6892695-8 (Version None)
Quarter: 2010Q3

REPORT INFORMATION
  Report Type: 
  Country: None (occurrence: None)
  Receive Date: 20100731
  Receipt Date: 20080822
  Transmission Date: 20110219
  Serious: No
  Sender: FDA-Public Use
  Company Number: US-PFIZER INC-2004095172

PATIENT
  Sex: Female

DRUGS (10)
  1. NORVASC [Suspect]
     Indication: HYPERTENSION
     Route: 048
     Dates: start: 20010101
  2. NORVASC [Suspect]
     Indication: ATRIAL FIBRILLATION
  3. AMOXICILLIN [Suspect]
     Indication: CYSTITIS
     Route: 065
  4. WARFARIN SODIUM [Concomitant]
     Route: 048
  5. LOPRESSOR [Concomitant]
     Route: 048
  6. FELODIPINE [Concomitant]
     Route: 048
  7. ACTONEL [Concomitant]
     Route: 048
  8. QUINIDINE HCL [Concomitant]
  9. METOPROLOL TARTRATE [Concomitant]
  10. CIMETIDINE [Concomitant]

REACTIONS (6)
  - ALOPECIA [None]
  - CYSTITIS [None]
  - DIZZINESS EXERTIONAL [None]
  - DRUG INEFFECTIVE [None]
  - HAIR GROWTH ABNORMAL [None]
  - SUSPICIOUSNESS [None]
